FAERS Safety Report 9394240 (Version 2)
Quarter: 2013Q3

REPORT INFORMATION
  Report Type: Report from Study
  Country: US (occurrence: US)
  Receive Date: 20130711
  Receipt Date: 20130730
  Transmission Date: 20140515
  Serious: Yes (Other)
  Sender: FDA-Public Use
  Company Number: US-PFIZER INC-2011293447

PATIENT
  Age: 61 Year
  Sex: Female
  Weight: 56.7 kg

DRUGS (8)
  1. LYRICA [Suspect]
     Dosage: 75 MG, 3X/DAY
     Dates: start: 20041022
  2. GEODON [Suspect]
     Dosage: UNK
  3. LAMOTRIGINE [Suspect]
     Dosage: UNK
  4. VALACICLOVIR [Suspect]
     Dosage: UNK
  5. LAMICTAL [Concomitant]
     Indication: MULTIPLE SCLEROSIS
     Dosage: UNK
  6. LAMICTAL [Concomitant]
     Indication: TRIGEMINAL NEURALGIA
  7. CLONAZEPAM [Concomitant]
     Dosage: UNK
  8. OXCARBAZEPINE [Concomitant]
     Dosage: 100 MG, 2X/DAY

REACTIONS (6)
  - Hallucination [Unknown]
  - Confusional state [Unknown]
  - Diabetes mellitus [Not Recovered/Not Resolved]
  - Eye pain [Unknown]
  - Visual impairment [Unknown]
  - Vision blurred [Unknown]
